FAERS Safety Report 4505710-3 (Version None)
Quarter: 2004Q4

REPORT INFORMATION
  Report Type: 
  Country: None (occurrence: None)
  Receive Date: 20041025
  Receipt Date: 20040301
  Transmission Date: 20050328
  Serious: Yes (Other)
  Sender: FDA-Public Use
  Company Number: US-JNJFOC-20040104285

PATIENT
  Age: 59 Year
  Sex: Female

DRUGS (7)
  1. REMICADE [Suspect]
     Indication: RHEUMATOID ARTHRITIS
     Dosage: 5 MG, KG; INTRAVENOUS
     Route: 042
     Dates: start: 20020201, end: 20031101
  2. ZETIA (CHOLESTEROL - AND TRIGLYCERIDE REDUCERS) [Concomitant]
  3. CALTRATE (CALCIUM CARBONATE) [Concomitant]
  4. MULTIVITAMIN (MULTIVITAMINS) [Concomitant]
  5. DARVOCET N (PROPACET) [Concomitant]
  6. FOSAMAX [Concomitant]
  7. PRILOSEC [Concomitant]

REACTIONS (1)
  - HEPATITIS [None]
